FAERS Safety Report 16510529 (Version 1)
Quarter: 2019Q3

REPORT INFORMATION
  Report Type: Spontaneous
  Country: SE (occurrence: SE)
  Receive Date: 20190702
  Receipt Date: 20190702
  Transmission Date: 20191004
  Serious: Yes (Other)
  Sender: FDA-Public Use
  Company Number: SE-ACCORD-135869

PATIENT
  Age: 29 Year
  Sex: Male

DRUGS (4)
  1. OXALIPLATIN. [Suspect]
     Active Substance: OXALIPLATIN
     Indication: RECTAL CANCER METASTATIC
     Dosage: 08-NOV-2018 TO 29-NOV-2018 215 MG, 3 WEEKS
     Route: 042
     Dates: start: 20181220, end: 20190116
  2. FLUOROURACIL. [Concomitant]
     Active Substance: FLUOROURACIL
     Route: 042
     Dates: start: 20190204, end: 20190415
  3. CETUXIMAB. [Concomitant]
     Active Substance: CETUXIMAB
     Dosage: 850 MG EVERY OTHER WEEK
     Route: 042
     Dates: start: 20190204, end: 20190415
  4. IRINOTECAN [Concomitant]
     Active Substance: IRINOTECAN
     Route: 042
     Dates: start: 20190204, end: 20190415

REACTIONS (1)
  - Ophthalmoplegia [Not Recovered/Not Resolved]

NARRATIVE: CASE EVENT DATE: 2019
